FAERS Safety Report 9216026 (Version 1)
Quarter: 2013Q2

REPORT INFORMATION
  Report Type: Spontaneous
  Country: US (occurrence: None)
  Receive Date: 20130402
  Receipt Date: 20130402
  Transmission Date: 20140414
  Serious: Yes (Other)
  Sender: FDA-Public Use
  Company Number: 1654689

PATIENT
  Age: 63 Year
  Sex: Male

DRUGS (3)
  1. PACLITAXEL [Suspect]
     Indication: NON-SMALL CELL LUNG CANCER STAGE IIIB
  2. CARBOPLATIN [Concomitant]
  3. BEVACIZUMAB [Suspect]
     Indication: NON-SMALL CELL LUNG CANCER STAGE IIIB
     Dosage: 7.5 MG/KG CYCLICAL

REACTIONS (4)
  - Colorectal cancer metastatic [None]
  - Arteriospasm coronary [None]
  - Metastases to central nervous system [None]
  - Non-small cell lung cancer recurrent [None]
